FAERS Safety Report 7564214-4 (Version None)
Quarter: 2011Q2

REPORT INFORMATION
  Report Type: 
  Country: None (occurrence: None)
  Receive Date: 20110622
  Receipt Date: 20110608
  Transmission Date: 20111010
  Serious: Yes (Other)
  Sender: FDA-Public Use
  Company Number: PHHY2011CA51112

PATIENT

DRUGS (4)
  1. DIURETICS [Concomitant]
  2. ALISKIREN [Suspect]
     Dosage: 300 MG DAILY
  3. CALCIUM CHANNEL BLOCKERS [Concomitant]
  4. ACE INHIBITOR NOS [Concomitant]

REACTIONS (3)
  - HYPERTENSION [None]
  - CONGENITAL CYSTIC KIDNEY DISEASE [None]
  - DRUG INEFFECTIVE [None]
